FAERS Safety Report 6610845-5 (Version None)
Quarter: 2010Q1

REPORT INFORMATION
  Report Type: 
  Country: None (occurrence: None)
  Receive Date: 20100219
  Receipt Date: 20100208
  Transmission Date: 20100710
  Serious: Yes (Other)
  Sender: FDA-Public Use
  Company Number: ALD1-JP-2010-0009

PATIENT
  Age: 33 Year
  Sex: Female

DRUGS (5)
  1. ALDOMET [Suspect]
     Indication: HYPERTENSION
     Dosage: 750 MG, ORAL; 1500 MG, ORAL; 2000 MG, ORAL; 1500 MG, ORAL
     Route: 048
     Dates: start: 20090427, end: 20090429
  2. ALDOMET [Suspect]
     Indication: HYPERTENSION
     Dosage: 750 MG, ORAL; 1500 MG, ORAL; 2000 MG, ORAL; 1500 MG, ORAL
     Route: 048
     Dates: start: 20090430, end: 20090506
  3. ALDOMET [Suspect]
     Indication: HYPERTENSION
     Dosage: 750 MG, ORAL; 1500 MG, ORAL; 2000 MG, ORAL; 1500 MG, ORAL
     Route: 048
     Dates: start: 20090507, end: 20090611
  4. ALDOMET [Suspect]
     Indication: HYPERTENSION
     Dosage: 750 MG, ORAL; 1500 MG, ORAL; 2000 MG, ORAL; 1500 MG, ORAL
     Route: 048
     Dates: start: 20090612, end: 20091203
  5. NORVASC [Concomitant]

REACTIONS (2)
  - COOMBS TEST POSITIVE [None]
  - DRUG EXPOSURE DURING PREGNANCY [None]
